FAERS Safety Report 8243426-0 (Version None)
Quarter: 2012Q1

REPORT INFORMATION
  Report Type: 
  Country: None (occurrence: None)
  Receive Date: 20120329
  Receipt Date: 20120319
  Transmission Date: 20120608
  Serious: Yes (Hospitalization)
  Sender: FDA-Public Use
  Company Number: US-VERTEX PHARMACEUTICALS INC.-AE-2012-004415

PATIENT
  Sex: Male
  Weight: 68.1 kg

DRUGS (3)
  1. RIBAVIRIN [Concomitant]
     Indication: HEPATITIS C
     Dates: start: 20111119, end: 20120315
  2. INCIVEK [Suspect]
     Indication: HEPATITIS C
     Route: 048
     Dates: start: 20120121, end: 20120315
  3. PEGASYS [Concomitant]
     Indication: HEPATITIS C
     Dates: start: 20111119, end: 20120315

REACTIONS (4)
  - PYREXIA [None]
  - ANAEMIA [None]
  - RASH GENERALISED [None]
  - INSOMNIA [None]
